FAERS Safety Report 13473939 (Version 3)
Quarter: 2017Q2

REPORT INFORMATION
  Report Type: Spontaneous
  Country: US (occurrence: US)
  Receive Date: 20170424
  Receipt Date: 20170605
  Transmission Date: 20170830
  Serious: Yes (Hospitalization, Other)
  Sender: FDA-Public Use
  Company Number: US-SA-2017SA072479

PATIENT
  Age: 44 Year
  Sex: Female

DRUGS (1)
  1. PLAVIX [Suspect]
     Active Substance: CLOPIDOGREL BISULFATE
     Indication: THROMBOSIS
     Dosage: 2 YEARS AGO START DATE
     Route: 065

REACTIONS (25)
  - Coma [Unknown]
  - Pain [Unknown]
  - Lung disorder [Unknown]
  - Weight decreased [Unknown]
  - Malaise [Unknown]
  - Pyrexia [Unknown]
  - Internal haemorrhage [Unknown]
  - Fatigue [Unknown]
  - Anaemia [Unknown]
  - Migraine [Unknown]
  - Nausea [Unknown]
  - Asthenia [Unknown]
  - Intervertebral disc protrusion [Unknown]
  - Urinary tract disorder [Unknown]
  - Abdominal pain upper [Unknown]
  - Hypercholesterolaemia [Unknown]
  - Hypersensitivity [Unknown]
  - Headache [Unknown]
  - Hypertension [Unknown]
  - Speech disorder [Unknown]
  - Diarrhoea [Unknown]
  - Cerebrovascular accident [Unknown]
  - Arteriosclerosis [Unknown]
  - Back pain [Unknown]
  - Frustration tolerance decreased [Unknown]

NARRATIVE: CASE EVENT DATE: 2015
